FAERS Safety Report 12860713 (Version 2)
Quarter: 2017Q1

REPORT INFORMATION
  Report Type: Spontaneous
  Country: JP (occurrence: JP)
  Receive Date: 20161019
  Receipt Date: 20170118
  Transmission Date: 20170428
  Serious: Yes (Death)
  Sender: FDA-Public Use
  Company Number: JP-009507513-1610JPN009964

PATIENT
  Age: 78 Year
  Sex: Male

DRUGS (5)
  1. URSO [Concomitant]
     Active Substance: URSODIOL
     Dosage: UNK
  2. GLACTIV [Suspect]
     Active Substance: SITAGLIPTIN
     Indication: TYPE 2 DIABETES MELLITUS
     Dosage: 50 MG, QD
     Route: 048
     Dates: end: 2013
  3. LIVALO [Concomitant]
     Active Substance: PITAVASTATIN CALCIUM
     Dosage: UNK
  4. BAYASPIRIN [Concomitant]
     Active Substance: ASPIRIN
     Dosage: UNK
  5. SIGMART [Concomitant]
     Active Substance: NICORANDIL
     Dosage: UNK

REACTIONS (4)
  - Disseminated intravascular coagulation [Fatal]
  - Pemphigoid [Fatal]
  - Renal impairment [Fatal]
  - Hepatic cirrhosis [Fatal]

NARRATIVE: CASE EVENT DATE: 20160928
